FAERS Safety Report 24526056 (Version 1)
Quarter: 2024Q4

REPORT INFORMATION
  Report Type: Spontaneous
  Country: NL (occurrence: NL)
  Receive Date: 20241021
  Receipt Date: 20241021
  Transmission Date: 20250114
  Serious: Yes (Other)
  Sender: AUROBINDO
  Company Number: NL-SAMSUNG BIOEPIS-SB-2024-29207

PATIENT
  Age: 52 Year
  Sex: Male

DRUGS (3)
  1. PREDNISONE [Suspect]
     Active Substance: PREDNISONE
     Indication: Pulmonary sarcoidosis
     Dosage: UNK (TAPER)
     Route: 065
  2. INFLIXIMAB [Suspect]
     Active Substance: INFLIXIMAB
     Indication: Pulmonary sarcoidosis
     Dosage: UNK
     Route: 065
  3. ALBUTEROL [Suspect]
     Active Substance: ALBUTEROL
     Indication: Pulmonary sarcoidosis
     Dosage: UNK
     Route: 065

REACTIONS (5)
  - Anaphylactic reaction [Unknown]
  - Drug ineffective [Unknown]
  - Productive cough [Unknown]
  - Dyspnoea [Unknown]
  - Off label use [Unknown]
